FAERS Safety Report 9118473 (Version 1)
Quarter: 2013Q1

REPORT INFORMATION
  Report Type: Spontaneous
  Country: US (occurrence: US)
  Receive Date: 20130219
  Receipt Date: 20130219
  Transmission Date: 20140127
  Serious: No
  Sender: FDA-Public Use
  Company Number: US-BRISTOL-MYERS SQUIBB COMPANY-17164716

PATIENT
  Age: 69 Year
  Sex: Male
  Weight: 64.85 kg

DRUGS (1)
  1. ORENCIA FOR INJ 250 MG/VIAL [Suspect]
     Indication: RHEUMATOID ARTHRITIS
     Dosage: DOSE INCREASED TO 1000MG?LAST INF: 2.5 MONTHS AGO

REACTIONS (1)
  - Drug ineffective [Unknown]
